FAERS Safety Report 26207435 (Version 1)
Quarter: 2025Q4

REPORT INFORMATION
  Report Type: Spontaneous
  Country: US (occurrence: US)
  Receive Date: 20251229
  Receipt Date: 20251229
  Transmission Date: 20260117
  Serious: Yes (Other)
  Sender: SOLARIS PHARMA CORPORATION
  Company Number: US-SPC-000795

PATIENT
  Age: 35 Year
  Sex: Female

DRUGS (1)
  1. ESTRADIOL [Suspect]
     Active Substance: ESTRADIOL
     Indication: Turner^s syndrome
     Dosage: FROM AGE 13 TO 35
     Route: 048

REACTIONS (2)
  - Product use in unapproved indication [Unknown]
  - Hepatic adenoma [Not Recovered/Not Resolved]

NARRATIVE: CASE EVENT DATE: 20240901
